FAERS Safety Report 25825506 (Version 1)
Quarter: 2025Q3

REPORT INFORMATION
  Report Type: Report from Study
  Country: EU (occurrence: EU)
  Receive Date: 20250919
  Receipt Date: 20250919
  Transmission Date: 20251021
  Serious: Yes (Other)
  Sender: MYLAN
  Company Number: EU-JNJFOC-20250901922

PATIENT
  Age: 62 Year
  Sex: Female

DRUGS (4)
  1. DEXAMETHASONE [Suspect]
     Active Substance: DEXAMETHASONE
     Indication: Plasma cell myeloma
     Dosage: 40 MILLIGRAM, QW, 40 MG/DOSE 1 DOSE(S)/WEEK 4 WEEK(S)/CYCLE
     Dates: end: 20201123
  2. VELCADE [Suspect]
     Active Substance: BORTEZOMIB
     Indication: Plasma cell myeloma
     Dosage: 2.3 MILLIGRAM, QW, 2.3 MG/DOSE 1 DOSE(S)/WEEK 4 WEEK(S)/CYCLE
     Dates: end: 20201123
  3. THALIDOMIDE [Suspect]
     Active Substance: THALIDOMIDE
     Indication: Plasma cell myeloma
  4. MELPHALAN [Suspect]
     Active Substance: MELPHALAN
     Indication: Plasma cell myeloma

REACTIONS (2)
  - Diarrhoea [Unknown]
  - Intentional product use issue [Unknown]
